FAERS Safety Report 25403365 (Version 1)
Quarter: 2025Q2

REPORT INFORMATION
  Report Type: Spontaneous
  Country: US (occurrence: US)
  Receive Date: 20250605
  Receipt Date: 20250605
  Transmission Date: 20250717
  Serious: No
  Sender: NEUROCRINE BIOSCIENCES
  Company Number: US-NEUROCRINE BIOSCIENCES INC.-2025NBI07103

PATIENT
  Sex: Female

DRUGS (2)
  1. CRENESSITY [Suspect]
     Active Substance: CRINECERFONT
     Indication: Adrenogenital syndrome
     Route: 065
  2. CORTEF [Concomitant]
     Active Substance: HYDROCORTISONE

REACTIONS (2)
  - Pain [Unknown]
  - Fatigue [Unknown]
